FAERS Safety Report 7343769-9 (Version None)
Quarter: 2011Q1

REPORT INFORMATION
  Report Type: 
  Country: None (occurrence: None)
  Receive Date: 20110308
  Receipt Date: 20110308
  Transmission Date: 20110831
  Serious: No
  Sender: FDA-Public Use
  Company Number: None

PATIENT
  Age: 59 Year
  Sex: Male
  Weight: 99.7913 kg

DRUGS (1)
  1. ZOCOR [Suspect]
     Indication: BLOOD CHOLESTEROL
     Dosage: 80MG PER DAY PO
     Route: 048
     Dates: start: 20090506, end: 20100412

REACTIONS (4)
  - TYPE 2 DIABETES MELLITUS [None]
  - MYOPATHY [None]
  - ARTHRALGIA [None]
  - MUSCLE SPASMS [None]
